FAERS Safety Report 18062371 (Version 1)
Quarter: 2020Q3

REPORT INFORMATION
  Report Type: Spontaneous
  Country: US (occurrence: US)
  Receive Date: 20200723
  Receipt Date: 20200723
  Transmission Date: 20201103
  Serious: Yes (Other)
  Sender: FDA-Public Use
  Company Number: NVSC2020US205021

PATIENT
  Sex: Female

DRUGS (2)
  1. RECLAST [Suspect]
     Active Substance: ZOLEDRONIC ACID
     Dosage: UNK
     Route: 065
     Dates: start: 20200630
  2. RECLAST [Suspect]
     Active Substance: ZOLEDRONIC ACID
     Indication: PRODUCT USED FOR UNKNOWN INDICATION
     Dosage: UNK
     Route: 065
     Dates: start: 201906

REACTIONS (13)
  - Pyrexia [Unknown]
  - Decreased appetite [Unknown]
  - Oropharyngeal pain [Unknown]
  - Chills [Unknown]
  - Cough [Unknown]
  - Joint swelling [Unknown]
  - Dizziness [Unknown]
  - Iritis [Unknown]
  - Liver disorder [Unknown]
  - Bone pain [Unknown]
  - Arthralgia [Unknown]
  - Renal impairment [Unknown]
  - Fatigue [Unknown]
